FAERS Safety Report 17676358 (Version 1)
Quarter: 2020Q2

REPORT INFORMATION
  Report Type: Spontaneous
  Country: IT (occurrence: IT)
  Receive Date: 20200416
  Receipt Date: 20200416
  Transmission Date: 20200714
  Serious: Yes (Other)
  Sender: FDA-Public Use
  Company Number: IT-AUROBINDO-AUR-APL-2020-018714

PATIENT
  Age: 75 Year
  Sex: Female

DRUGS (4)
  1. BISOPROLOL [Suspect]
     Active Substance: BISOPROLOL
     Indication: ATRIAL FIBRILLATION
     Dosage: 5 MILLIGRAM, ONCE A DAY
     Route: 048
  2. LIXIANA [Concomitant]
     Active Substance: EDOXABAN TOSYLATE
     Indication: ATRIAL FIBRILLATION
     Dosage: 30 MILLIGRAM
     Route: 048
  3. RYTMONORM [Suspect]
     Active Substance: PROPAFENONE
     Indication: ATRIAL FIBRILLATION
     Dosage: 2 DOSAGE FORM, ONCE A DAY
     Route: 048
  4. ESOMEPRAZOLE SODIUM. [Concomitant]
     Active Substance: ESOMEPRAZOLE SODIUM
     Indication: PROPHYLAXIS
     Dosage: 40 MILLIGRAM
     Route: 048

REACTIONS (3)
  - Tachycardia [Recovered/Resolved]
  - Hypertension [Recovered/Resolved]
  - Arrhythmia [Recovered/Resolved]

NARRATIVE: CASE EVENT DATE: 20200318
